FAERS Safety Report 6411169-1 (Version None)
Quarter: 2009Q4

REPORT INFORMATION
  Report Type: 
  Country: None (occurrence: None)
  Receive Date: 20091022
  Receipt Date: 20091016
  Transmission Date: 20100525
  Serious: Yes (Other)
  Sender: FDA-Public Use
  Company Number: JP-PFIZER INC-2009285685

PATIENT
  Age: 4 Year

DRUGS (1)
  1. SOLU-MEDROL [Suspect]
     Dosage: UNK
     Dates: start: 20091016

REACTIONS (1)
  - ANAPHYLACTIC SHOCK [None]
